FAERS Safety Report 19226818 (Version 1)
Quarter: 2021Q2

REPORT INFORMATION
  Report Type: Spontaneous
  Country: US (occurrence: US)
  Receive Date: 20210506
  Receipt Date: 20210506
  Transmission Date: 20210717
  Serious: Yes (Death, Other)
  Sender: FDA-Public Use
  Company Number: US-AMGEN-USASP2021066374

PATIENT
  Age: 30 Year
  Sex: Female

DRUGS (7)
  1. CYTARABINE. [Concomitant]
     Active Substance: CYTARABINE
     Dosage: 2 GRAM PER SQUARE METRE DAILY FOR 4 DAYS
  2. FILGRASTIM [Suspect]
     Active Substance: FILGRASTIM
     Indication: ALLOGENIC STEM CELL TRANSPLANTATION
     Dosage: 5 MICROGRAM/KILOGRAM ON DAY 7 POST TRANSPLANT UNTIL ANC }1000/UL FOR 3 CONSECTIVE DAYS
     Route: 058
  3. IDARUBICIN [Concomitant]
     Active Substance: IDARUBICIN
     Dosage: 12 MILLILITRE PER SQUARE METRE DAILY FOR 3 DAYS
     Route: 042
  4. THIOTEPA. [Concomitant]
     Active Substance: THIOTEPA
  5. GANCICLOVIR. [Concomitant]
     Active Substance: GANCICLOVIR
     Dosage: UNK UNTIL 100 DAYS
  6. FLUDARABINE [Concomitant]
     Active Substance: FLUDARABINE PHOSPHATE
     Dosage: 30 MILLIGRAM/SQ. METER DAILY
     Route: 042
  7. METHOTREXATE. [Concomitant]
     Active Substance: METHOTREXATE
     Dosage: 5 MILLIGRAM/SQ. METER ON DAYS 1,3 AND 6 DAYS

REACTIONS (3)
  - Acute graft versus host disease [Unknown]
  - Cerebral haemorrhage [Fatal]
  - Toxicity to various agents [Unknown]
